FAERS Safety Report 16557552 (Version 1)
Quarter: 2019Q3

REPORT INFORMATION
  Report Type: Spontaneous
  Country: US (occurrence: US)
  Receive Date: 20190529
  Receipt Date: 20190529
  Transmission Date: 20191004
  Serious: No
  Sender: FDA-Public Use
  Company Number: None

PATIENT
  Age: 17 Year
  Sex: Male

DRUGS (1)
  1. REMICADE [Suspect]
     Active Substance: INFLIXIMAB
     Indication: CROHN^S DISEASE
     Dosage: ?          OTHER FREQUENCY:Q 6 WEEKS;OTHER ROUTE:IV?
     Dates: start: 20181205

REACTIONS (4)
  - Urticaria [None]
  - Infusion related reaction [None]
  - Pruritus [None]
  - Agitation [None]

NARRATIVE: CASE EVENT DATE: 20190520
